FAERS Safety Report 14911732 (Version 1)
Quarter: 2018Q2

REPORT INFORMATION
  Report Type: Spontaneous
  Country: FR (occurrence: FR)
  Receive Date: 20180518
  Receipt Date: 20180518
  Transmission Date: 20180711
  Serious: Yes (Other)
  Sender: FDA-Public Use
  Company Number: FR-ABBVIE-18K-056-2359225-00

PATIENT
  Age: 10 Year
  Sex: Male

DRUGS (1)
  1. HUMIRA [Suspect]
     Active Substance: ADALIMUMAB
     Indication: SPONDYLITIS
     Route: 058

REACTIONS (6)
  - Ocular hyperaemia [Unknown]
  - Pyrexia [Unknown]
  - Acne [Unknown]
  - Acute febrile neutrophilic dermatosis [Unknown]
  - Vasculitic rash [Unknown]
  - Myalgia [Unknown]
